FAERS Safety Report 7045803-2 (Version None)
Quarter: 2010Q4

REPORT INFORMATION
  Report Type: 
  Country: None (occurrence: None)
  Receive Date: 20101014
  Receipt Date: 20101004
  Transmission Date: 20110411
  Serious: Yes (Other)
  Sender: FDA-Public Use
  Company Number: US-ABBOTT-10P-163-0676264-00

PATIENT
  Sex: Male
  Weight: 104.42 kg

DRUGS (10)
  1. NIASPAN [Suspect]
     Indication: BLOOD CHOLESTEROL INCREASED
     Dosage: AT BED TIME
     Dates: start: 20070101
  2. NIASPAN [Suspect]
     Dosage: AT BED TIME
     Dates: end: 20100908
  3. SIMCOR [Suspect]
     Indication: BLOOD CHOLESTEROL INCREASED
     Dosage: 1000/20MG AT BED TIME
     Dates: start: 20100912
  4. NEXIUM [Concomitant]
     Indication: PRODUCT USED FOR UNKNOWN INDICATION
     Dates: start: 20100912
  5. LISINOPRIL [Concomitant]
     Indication: HYPERTENSION
     Dates: start: 20100912
  6. PRASUGREL [Concomitant]
     Indication: PALPITATIONS
     Dates: start: 20100912
  7. ISOSORB MONO ER [Concomitant]
     Indication: CHEST PAIN
  8. DILTIAZEM HCL ER [Concomitant]
     Indication: HYPERTENSION
  9. GLIMEPIRIDE [Concomitant]
     Indication: PRODUCT USED FOR UNKNOWN INDICATION
  10. ASPIRIN [Concomitant]
     Indication: PRODUCT USED FOR UNKNOWN INDICATION

REACTIONS (12)
  - ABDOMINAL DISCOMFORT [None]
  - BACK PAIN [None]
  - BLOOD GLUCOSE INCREASED [None]
  - CARDIAC STRESS TEST ABNORMAL [None]
  - CHEST PAIN [None]
  - CORONARY ARTERY OCCLUSION [None]
  - FLATULENCE [None]
  - GASTRIC DISORDER [None]
  - OROPHARYNGEAL DISCOMFORT [None]
  - PALPITATIONS [None]
  - SKIN BURNING SENSATION [None]
  - THROAT IRRITATION [None]
